FAERS Safety Report 9326064 (Version 7)
Quarter: 2015Q4

REPORT INFORMATION
  Report Type: Report from Study
  Country: DE (occurrence: DE)
  Receive Date: 20130604
  Receipt Date: 20151202
  Transmission Date: 20160305
  Serious: Yes (Life-Threatening, Hospitalization)
  Sender: FDA-Public Use
  Company Number: DE-ROCHE-1232265

PATIENT
  Age: 71 Year
  Sex: Male
  Weight: 88 kg

DRUGS (14)
  1. MERONEM [Concomitant]
     Active Substance: MEROPENEM
     Route: 065
     Dates: start: 20130422, end: 20130507
  2. LOCOL (GERMANY) [Concomitant]
     Route: 048
     Dates: start: 20130430
  3. PEMETREXED DISODIUM [Suspect]
     Active Substance: PEMETREXED DISODIUM
     Indication: NON-SMALL CELL LUNG CANCER
     Route: 042
     Dates: start: 20130402, end: 20130402
  4. BIFITERAL [Concomitant]
     Active Substance: LACTULOSE
     Route: 048
     Dates: start: 20130430
  5. DIGOXIN. [Concomitant]
     Active Substance: DIGOXIN
     Route: 065
     Dates: start: 20130427
  6. ACC [Concomitant]
     Active Substance: ACETYLCYSTEINE
     Route: 048
     Dates: start: 20130430
  7. MUCOSOLVAN [Concomitant]
     Active Substance: AMBROXOL HYDROCHLORIDE
     Route: 042
     Dates: start: 20130430, end: 20130515
  8. PASPERTIN (METOCLOPRAMIDE HYDROCHLORIDE) [Concomitant]
     Dosage: 3 X DAILY.
     Route: 042
     Dates: start: 20130430, end: 20130515
  9. CARBOPLATIN. [Suspect]
     Active Substance: CARBOPLATIN
     Indication: NON-SMALL CELL LUNG CANCER
     Dosage: AUC 5
     Route: 042
     Dates: start: 20130402, end: 20130402
  10. BEVACIZUMAB [Suspect]
     Active Substance: BEVACIZUMAB
     Indication: NON-SMALL CELL LUNG CANCER
     Route: 042
     Dates: start: 20130402, end: 20130402
  11. CAPTOPRIL. [Concomitant]
     Active Substance: CAPTOPRIL
     Indication: HYPERTENSION
     Route: 048
     Dates: start: 20020101
  12. MOTILIUM [Concomitant]
     Active Substance: DOMPERIDONE
     Route: 048
     Dates: start: 20130430, end: 20130515
  13. SIMVASTATIN. [Concomitant]
     Active Substance: SIMVASTATIN
     Indication: HYPERLIPIDAEMIA
     Route: 048
     Dates: start: 20020101
  14. BELOC-ZOK MITE [Concomitant]
     Active Substance: METOPROLOL SUCCINATE
     Route: 065
     Dates: start: 20130427

REACTIONS (8)
  - Anxiety [Unknown]
  - Pneumonia [Unknown]
  - Infection [Recovered/Resolved]
  - General physical health deterioration [Recovered/Resolved]
  - Hypertension [Unknown]
  - Tumour necrosis [Recovered/Resolved with Sequelae]
  - Haemothorax [Recovered/Resolved]
  - Pneumonia [Recovered/Resolved with Sequelae]

NARRATIVE: CASE EVENT DATE: 20130423
